FAERS Safety Report 19444450 (Version 1)
Quarter: 2021Q2

REPORT INFORMATION
  Report Type: Spontaneous
  Country: AU (occurrence: AU)
  Receive Date: 20210621
  Receipt Date: 20210621
  Transmission Date: 20210717
  Serious: Yes (Life-Threatening, Hospitalization)
  Sender: FDA-Public Use
  Company Number: AU-VERTEX PHARMACEUTICALS-2021-008943

PATIENT
  Age: 8 Year
  Sex: Male
  Weight: 24.5 kg

DRUGS (16)
  1. TIOTROPIUM [Concomitant]
     Active Substance: TIOTROPIUM
     Dosage: T, BID
  2. SPIRONOLACTONE. [Concomitant]
     Active Substance: SPIRONOLACTONE
     Dosage: UNK, QD
     Route: 048
  3. THIAMINE. [Concomitant]
     Active Substance: THIAMINE
     Dosage: UNK, QD
     Route: 048
  4. CREON [Concomitant]
     Active Substance: PANCRELIPASE AMYLASE\PANCRELIPASE LIPASE\PANCRELIPASE PROTEASE
     Dosage: UNK, PRN, 25,000 UNITS
     Route: 048
  5. PHYTOMENADIONE [Concomitant]
     Active Substance: PHYTONADIONE
     Route: 042
  6. ORKAMBI [Suspect]
     Active Substance: IVACAFTOR\LUMACAFTOR
     Indication: CYSTIC FIBROSIS
     Dosage: 2 DOSAGE FORM, BID
     Route: 048
     Dates: start: 201901
  7. ZINC SULFATE. [Concomitant]
     Active Substance: ZINC SULFATE
     Route: 048
  8. SODIUM CHLORIDE. [Concomitant]
     Active Substance: SODIUM CHLORIDE
     Dosage: UNK, BID
  9. SALBUTAMOL [Concomitant]
     Active Substance: ALBUTEROL
     Dosage: 4 PUFFS, PRN
  10. DORNASE ALFA. [Concomitant]
     Active Substance: DORNASE ALFA
     Dosage: NEB
  11. OMEPRAZOLE. [Concomitant]
     Active Substance: OMEPRAZOLE
     Dosage: UNK, QD
     Route: 048
  12. PROPANOLOL [PROPRANOLOL] [Concomitant]
     Active Substance: PROPRANOLOL HYDROCHLORIDE
     Dosage: UNK, TID
     Route: 048
  13. CEFTAZIDIME. [Concomitant]
     Active Substance: CEFTAZIDIME
     Dosage: UNK, TID
     Route: 042
  14. TOBRAMYCIN. [Concomitant]
     Active Substance: TOBRAMYCIN
     Route: 042
  15. BUDESONIDE. [Concomitant]
     Active Substance: BUDESONIDE
     Dosage: T, BID
  16. COLECALCIFEROL [Concomitant]
     Active Substance: CHOLECALCIFEROL
     Dosage: 2000 UNITS, QD
     Route: 048

REACTIONS (14)
  - Cystic fibrosis related diabetes [Not Recovered/Not Resolved]
  - Malabsorption [Not Recovered/Not Resolved]
  - Pulmonary function test decreased [Unknown]
  - Weight gain poor [Not Recovered/Not Resolved]
  - Bronchiectasis [Unknown]
  - Diarrhoea [Not Recovered/Not Resolved]
  - Bronchopulmonary aspergillosis allergic [Recovered/Resolved]
  - Splenomegaly [Unknown]
  - Malnutrition [Not Recovered/Not Resolved]
  - Enterovirus infection [Unknown]
  - Pseudomonas infection [Unknown]
  - Ascites [Unknown]
  - Stenotrophomonas infection [Unknown]
  - Portal hypertension [Unknown]

NARRATIVE: CASE EVENT DATE: 20200921
